FAERS Safety Report 15577265 (Version 1)
Quarter: 2018Q4

REPORT INFORMATION
  Report Type: Report from Study
  Country: US (occurrence: US)
  Receive Date: 20181102
  Receipt Date: 20181102
  Transmission Date: 20190205
  Serious: Yes (Death, Life-Threatening, Hospitalization, Other)
  Sender: FDA-Public Use
  Company Number: US-BRISTOL-MYERS SQUIBB COMPANY-BMS-2018-092899

PATIENT
  Age: 80 Year
  Sex: Male
  Weight: 74.1 kg

DRUGS (3)
  1. PREDNISONE. [Suspect]
     Active Substance: PREDNISONE
     Indication: PRODUCT USED FOR UNKNOWN INDICATION
     Dosage: 60 MG, DAILY
     Route: 065
  2. NIVOLUMAB [Suspect]
     Active Substance: NIVOLUMAB
     Indication: MALIGNANT FIBROUS HISTIOCYTOMA
     Dosage: 3 MG/KG, UNK
     Route: 042
     Dates: start: 20180807, end: 20180905
  3. IPILIMUMAB [Suspect]
     Active Substance: IPILIMUMAB
     Indication: MALIGNANT FIBROUS HISTIOCYTOMA
     Dosage: 1 MG/KG, UNK
     Route: 042
     Dates: start: 20180807, end: 20180905

REACTIONS (6)
  - Sepsis [Recovered/Resolved]
  - Pneumonia [Fatal]
  - Acute kidney injury [Recovering/Resolving]
  - Staphylococcal infection [Unknown]
  - Aspiration [Unknown]
  - General physical health deterioration [Unknown]

NARRATIVE: CASE EVENT DATE: 20180913
